FAERS Safety Report 23595057 (Version 1)
Quarter: 2024Q1

REPORT INFORMATION
  Report Type: Spontaneous
  Country: US (occurrence: US)
  Receive Date: 20240305
  Receipt Date: 20240305
  Transmission Date: 20240410
  Serious: Yes (Other)
  Sender: FDA-Public Use
  Company Number: US-SUN PHARMACEUTICAL INDUSTRIES LTD-2024R1-434263

PATIENT
  Age: 69 Year
  Sex: Male
  Weight: 76.19 kg

DRUGS (7)
  1. METOPROLOL [Interacting]
     Active Substance: METOPROLOL
     Indication: Cardiac failure
     Dosage: 50 MILLIGRAM, DAILY
     Route: 065
  2. METOPROLOL [Interacting]
     Active Substance: METOPROLOL
     Dosage: 12.5 MILLIGRAM, DAILY
     Route: 065
  3. VALSARTAN [Interacting]
     Active Substance: VALSARTAN
     Indication: Cardiac failure
     Dosage: 26 MILLIGRAM, BID
     Route: 065
  4. EMPAGLIFLOZIN [Interacting]
     Active Substance: EMPAGLIFLOZIN
     Indication: Cardiac failure
     Dosage: 10 MILLIGRAM, DAILY
     Route: 065
  5. EPLERENONE [Interacting]
     Active Substance: EPLERENONE
     Indication: Cardiac failure
     Dosage: 50 MILLIGRAM, DAILY
     Route: 065
  6. SACUBITRIL [Interacting]
     Active Substance: SACUBITRIL
     Indication: Cardiac failure
     Dosage: 24 MILLIGRAM, BID
     Route: 065
  7. TIRZEPATIDE [Interacting]
     Active Substance: TIRZEPATIDE
     Indication: Cardiac failure
     Dosage: 7.5 MILLIGRAM, WEEKLY
     Route: 065

REACTIONS (5)
  - Drug interaction [Unknown]
  - Hypotension [Recovering/Resolving]
  - Hypovolaemia [Recovering/Resolving]
  - Dizziness [Recovering/Resolving]
  - Tachycardia [Recovering/Resolving]
